FAERS Safety Report 5298333-2 (Version None)
Quarter: 2007Q2

REPORT INFORMATION
  Report Type: 
  Country: None (occurrence: None)
  Receive Date: 20070416
  Receipt Date: 20070404
  Transmission Date: 20071010
  Serious: Yes (Other)
  Sender: FDA-Public Use
  Company Number: CA-PFIZER INC-2007015578

PATIENT
  Age: 70 Year
  Sex: Female

DRUGS (3)
  1. SUTENT [Suspect]
     Indication: RENAL CELL CARCINOMA STAGE UNSPECIFIED
     Route: 048
  2. HEPARIN [Concomitant]
  3. LOSEC [Concomitant]

REACTIONS (6)
  - ASTHENIA [None]
  - BODY TEMPERATURE DECREASED [None]
  - FATIGUE [None]
  - HAEMATURIA [None]
  - HAEMOGLOBIN DECREASED [None]
  - KIDNEY INFECTION [None]
